FAERS Safety Report 7077367-1 (Version None)
Quarter: 2010Q4

REPORT INFORMATION
  Report Type: 
  Country: None (occurrence: None)
  Receive Date: 20101029
  Receipt Date: 20101029
  Transmission Date: 20110411
  Serious: Yes (Other)
  Sender: FDA-Public Use
  Company Number: None

PATIENT
  Age: 33 Year
  Sex: Female
  Weight: 86.1834 kg

DRUGS (1)
  1. CYMBALTA [Suspect]
     Indication: POSTPARTUM DISORDER
     Dosage: 60 MG 1 DAILY PO
     Route: 048
     Dates: start: 20100301, end: 20100601

REACTIONS (8)
  - DECREASED INTEREST [None]
  - DRUG WITHDRAWAL SYNDROME [None]
  - EXPRESSIVE LANGUAGE DISORDER [None]
  - IMPAIRED WORK ABILITY [None]
  - INFLUENZA LIKE ILLNESS [None]
  - PARAESTHESIA [None]
  - SOMNOLENCE [None]
  - TINNITUS [None]
